FAERS Safety Report 25398168 (Version 2)
Quarter: 2025Q4

REPORT INFORMATION
  Report Type: Spontaneous
  Country: US (occurrence: US)
  Receive Date: 20250604
  Receipt Date: 20251008
  Transmission Date: 20260119
  Serious: No
  Sender: SANOFI AVENTIS
  Company Number: US-SA-2025SA157536

PATIENT
  Age: 22 Year
  Sex: Female
  Weight: 68.18 kg

DRUGS (4)
  1. DUPIXENT [Suspect]
     Active Substance: DUPILUMAB
     Indication: Dermatitis atopic
     Dosage: 600 MG, 1X
     Route: 058
     Dates: start: 20250518, end: 20250518
  2. DUPIXENT [Suspect]
     Active Substance: DUPILUMAB
     Dosage: 300 MG, QOW
     Route: 058
     Dates: start: 2025
  3. EFFEXOR [Concomitant]
     Active Substance: VENLAFAXINE HYDROCHLORIDE
  4. ALLEGRA ALLERGY [Concomitant]
     Active Substance: FEXOFENADINE HYDROCHLORIDE

REACTIONS (8)
  - Injection site vesicles [Recovered/Resolved]
  - Injection site discolouration [Unknown]
  - Needle issue [Unknown]
  - Rebound atopic dermatitis [Unknown]
  - Product dose omission issue [Unknown]
  - Eczema [Unknown]
  - Pruritus [Unknown]
  - Skin warm [Unknown]

NARRATIVE: CASE EVENT DATE: 20250101
